FAERS Safety Report 8129998-5 (Version None)
Quarter: 2012Q1

REPORT INFORMATION
  Report Type: 
  Country: None (occurrence: None)
  Receive Date: 20120210
  Receipt Date: 20120131
  Transmission Date: 20120608
  Serious: Yes (Hospitalization)
  Sender: FDA-Public Use
  Company Number: HU-ABBOTT-12P-076-0900325-00

PATIENT
  Sex: Male
  Weight: 69 kg

DRUGS (3)
  1. HUMIRA [Suspect]
     Indication: COLITIS ULCERATIVE
     Route: 058
     Dates: start: 20090423, end: 20120119
  2. PENTASA [Concomitant]
     Indication: COLITIS ULCERATIVE
     Dates: start: 20071001
  3. IMURAN [Concomitant]
     Indication: COLITIS ULCERATIVE
     Dates: start: 20071113

REACTIONS (1)
  - TESTICULAR PAIN [None]
